FAERS Safety Report 14469753 (Version 2)
Quarter: 2018Q1

REPORT INFORMATION
  Report Type: Other
  Country: US (occurrence: US)
  Receive Date: 20180131
  Receipt Date: 20180202
  Transmission Date: 20180509
  Serious: Yes (Other)
  Sender: FDA-Public Use
  Company Number: US-CARDINAL HEALTH SPECIALTY SOLUTIONS-2041161

PATIENT
  Age: 63 Year
  Sex: Female

DRUGS (6)
  1. CLOPIDOGREL [Concomitant]
     Active Substance: CLOPIDOGREL BISULFATE
  2. CLOPIDOGREL [Concomitant]
     Active Substance: CLOPIDOGREL BISULFATE
  3. LOW DOSE ADULT ASPIRIN CHEWABLE [Suspect]
     Active Substance: ASPIRIN
     Indication: ANTIPLATELET THERAPY
     Route: 048
  4. ASPIRIN. [Concomitant]
     Active Substance: ASPIRIN
  5. TICAGRELOR. [Concomitant]
     Active Substance: TICAGRELOR
  6. TICAGRELOR. [Concomitant]
     Active Substance: TICAGRELOR

REACTIONS (2)
  - Cerebral thrombosis [Unknown]
  - Cerebral infarction [Unknown]
